FAERS Safety Report 9739384 (Version 1)
Quarter: 2013Q4

REPORT INFORMATION
  Report Type: Report from Study
  Country: AR (occurrence: AR)
  Receive Date: 20131209
  Receipt Date: 20131209
  Transmission Date: 20140711
  Serious: Yes (Other)
  Sender: FDA-Public Use
  Company Number: AR-US-EMD SERONO, INC.-7254959

PATIENT
  Sex: Female

DRUGS (2)
  1. SAIZEN [Suspect]
     Indication: SMALL FOR DATES BABY
     Dates: start: 20130624
  2. SAIZEN [Suspect]

REACTIONS (1)
  - Papilloedema [Unknown]
